FAERS Safety Report 23406587 (Version 2)
Quarter: 2025Q2

REPORT INFORMATION
  Report Type: Report from Study
  Country: IT (occurrence: IT)
  Receive Date: 20240116
  Receipt Date: 20250602
  Transmission Date: 20250716
  Serious: Yes (Hospitalization)
  Sender: MYLAN
  Company Number: IT-LUNDBECK-DKLU3072055

PATIENT
  Age: 20 Year
  Sex: Male
  Weight: 83 kg

DRUGS (7)
  1. PREGABALIN [Suspect]
     Active Substance: PREGABALIN
     Indication: Mental disorder
  2. CITALOPRAM [Suspect]
     Active Substance: CITALOPRAM
     Indication: Antidepressant therapy
  3. CITALOPRAM [Suspect]
     Active Substance: CITALOPRAM
  4. QUETIAPINE [Suspect]
     Active Substance: QUETIAPINE
     Indication: Mental disorder
  5. QUETIAPINE [Suspect]
     Active Substance: QUETIAPINE
  6. DELORAZEPAM [Suspect]
     Active Substance: DELORAZEPAM
     Indication: Mental disorder
  7. VORTIOXETINE [Suspect]
     Active Substance: VORTIOXETINE
     Indication: Antidepressant therapy

REACTIONS (1)
  - Serotonin syndrome [Unknown]
